FAERS Safety Report 8094148-0 (Version None)
Quarter: 2012Q1

REPORT INFORMATION
  Report Type: 
  Country: None (occurrence: None)
  Receive Date: 20120130
  Receipt Date: 20120130
  Transmission Date: 20120608
  Serious: Yes (Other)
  Sender: FDA-Public Use
  Company Number: None

PATIENT
  Sex: Male

DRUGS (1)
  1. TRELSTAR [Suspect]
     Dosage: 22.5 MG
     Route: 030
     Dates: start: 20120126, end: 20120126

REACTIONS (2)
  - MEDICAL DEVICE COMPLICATION [None]
  - INCORRECT DOSE ADMINISTERED BY DEVICE [None]
